FAERS Safety Report 19682762 (Version 2)
Quarter: 2021Q3

REPORT INFORMATION
  Report Type: Spontaneous
  Country: US (occurrence: US)
  Receive Date: 20210810
  Receipt Date: 20210812
  Transmission Date: 20211014
  Serious: Yes (Death)
  Sender: FDA-Public Use
  Company Number: US-CELGENEUS-USA-20210800965

PATIENT
  Age: 85 Year
  Sex: Female
  Weight: 55.84 kg

DRUGS (50)
  1. CLOPIDOGREL [Concomitant]
     Active Substance: CLOPIDOGREL BISULFATE
     Indication: THROMBOSIS PROPHYLAXIS
     Route: 048
  2. DICLOFENAC [Concomitant]
     Active Substance: DICLOFENAC
     Indication: ARTHRALGIA
     Route: 061
     Dates: start: 20210503
  3. DIPHENHYDRAMINE. [Concomitant]
     Active Substance: DIPHENHYDRAMINE
     Route: 041
     Dates: start: 20210629
  4. ALLOPURINOL. [Concomitant]
     Active Substance: ALLOPURINOL
     Indication: PROPHYLAXIS
     Dosage: 200 MILLIGRAM
     Route: 048
     Dates: start: 20210626
  5. CEFEPIME [Concomitant]
     Active Substance: CEFEPIME HYDROCHLORIDE
     Indication: LUNG INFILTRATION
     Dosage: 4 GRAM
     Route: 041
     Dates: start: 20210703, end: 20210716
  6. MUPIROCIN. [Concomitant]
     Active Substance: MUPIROCIN
     Indication: INFECTION PROPHYLAXIS
     Dosage: 1 GRAM
     Route: 048
     Dates: start: 20210625
  7. INSULIN LISPRO [Concomitant]
     Active Substance: INSULIN LISPRO
     Indication: HYPERGLYCAEMIA
     Dosage: 2?12 UNITS
     Route: 058
     Dates: start: 20210628
  8. ONDANSETRON [Concomitant]
     Active Substance: ONDANSETRON
     Indication: NAUSEA
  9. ALBUTEROL?IPRATROPIUM [Concomitant]
     Active Substance: ALBUTEROL\IPRATROPIUM
     Indication: LUNG INFILTRATION
     Route: 055
     Dates: start: 20210703
  10. CITALOPRAM [Concomitant]
     Active Substance: CITALOPRAM HYDROBROMIDE
     Indication: ANXIETY
     Dosage: 5 MILLIGRAM
     Route: 048
     Dates: start: 20210720
  11. HYDROXYUREA. [Concomitant]
     Active Substance: HYDROXYUREA
     Indication: ACUTE MYELOID LEUKAEMIA
     Dosage: 3000 MILLIGRAM
     Route: 048
     Dates: start: 20210625, end: 20210627
  12. SODIUM BICARBONATE. [Concomitant]
     Active Substance: SODIUM BICARBONATE
     Indication: MUCOSITIS MANAGEMENT
     Dosage: 60 MILLILITER
     Route: 048
     Dates: start: 20210625
  13. CHLORHEXIDINE [Concomitant]
     Active Substance: CHLORHEXIDINE
     Indication: MUCOSAL INFLAMMATION
     Dosage: 45 MILLILITER
     Route: 065
     Dates: start: 20210625
  14. ONDANSETRON [Concomitant]
     Active Substance: ONDANSETRON
     Indication: PREMEDICATION
     Route: 048
     Dates: start: 20210629
  15. FUROSEMIDE. [Concomitant]
     Active Substance: FUROSEMIDE
     Indication: FLUID OVERLOAD
     Dosage: 20 TO 40MG
     Route: 041
     Dates: start: 20210630
  16. CITALOPRAM [Concomitant]
     Active Substance: CITALOPRAM HYDROBROMIDE
     Indication: DEPRESSION
  17. ACYCLOVIR. [Concomitant]
     Active Substance: ACYCLOVIR
     Indication: ANTIVIRAL PROPHYLAXIS
     Dosage: 800 MILLIGRAM
     Route: 048
     Dates: start: 20210717
  18. GUAIFENESIN. [Concomitant]
     Active Substance: GUAIFENESIN
     Dosage: 2400 MILLIGRAM
     Route: 048
     Dates: start: 20210706
  19. VENETOCLAX. [Suspect]
     Active Substance: VENETOCLAX
     Dosage: 200 MILLIGRAM
     Route: 048
     Dates: start: 20210630, end: 20210630
  20. FAMOTIDINE. [Concomitant]
     Active Substance: FAMOTIDINE
     Indication: GASTROOESOPHAGEAL REFLUX DISEASE
     Dosage: 20 MILLIGRAM
     Route: 048
     Dates: start: 2011
  21. MELATONIN [Concomitant]
     Active Substance: MELATONIN
     Indication: SLEEP DISORDER THERAPY
     Route: 048
     Dates: start: 20210629
  22. DIPHENHYDRAMINE. [Concomitant]
     Active Substance: DIPHENHYDRAMINE
     Indication: PREMEDICATION
     Route: 041
     Dates: start: 20210627
  23. GUAIFENESIN. [Concomitant]
     Active Substance: GUAIFENESIN
     Indication: LUNG INFILTRATION
     Route: 048
     Dates: start: 20210702
  24. HYDROXYUREA. [Concomitant]
     Active Substance: HYDROXYUREA
     Indication: ESSENTIAL THROMBOCYTHAEMIA
     Dosage: 2000 MILLIGRAM
     Route: 048
     Dates: start: 2003, end: 20210625
  25. HYDROXYUREA. [Concomitant]
     Active Substance: HYDROXYUREA
     Indication: LEUKOCYTOSIS
     Dosage: 10000 MILLIGRAM
     Route: 048
     Dates: start: 20210628, end: 20210629
  26. LEMZOPARLIMAB. [Suspect]
     Active Substance: LEMZOPARLIMAB
     Indication: ACUTE MYELOID LEUKAEMIA
     Dosage: ON DAYS 1, 8, 15 AND 22 OF A 28 DAY CYCLE
     Route: 041
     Dates: start: 20210629
  27. SENNA DOCUSATE [Concomitant]
     Indication: CONSTIPATION
     Dosage: 2 TABLET
     Route: 048
     Dates: start: 20210625
  28. LEVOFLOXACIN. [Concomitant]
     Active Substance: LEVOFLOXACIN
     Indication: LUNG INFILTRATION
     Dosage: 250 MILLIGRAM
     Route: 048
     Dates: start: 20210716
  29. DOCUSATE SODIUM. [Concomitant]
     Active Substance: DOCUSATE SODIUM
     Indication: CONSTIPATION
     Dosage: 400 MILLIGRAM
     Route: 048
     Dates: start: 20210706
  30. NORMAL SALINE [Concomitant]
     Active Substance: SODIUM CHLORIDE
     Indication: FLUID REPLACEMENT
     Dosage: 50ML/HR
     Route: 041
     Dates: start: 20210625
  31. NORMAL SALINE [Concomitant]
     Active Substance: SODIUM CHLORIDE
     Indication: PROPHYLAXIS
  32. LEVOFLOXACIN. [Concomitant]
     Active Substance: LEVOFLOXACIN
     Indication: PNEUMONIA
     Dosage: 375 MILLIGRAM
     Route: 041
     Dates: start: 20210627, end: 20210701
  33. MIRTAZAPINE. [Concomitant]
     Active Substance: MIRTAZAPINE
     Indication: DEPRESSION
     Dosage: 7.5 MILLIGRAM
     Route: 048
     Dates: start: 20210707, end: 20210715
  34. AZACITIDINE. [Suspect]
     Active Substance: AZACITIDINE
     Indication: ACUTE MYELOID LEUKAEMIA
     Dosage: 75 MILLIGRAM/SQ. METER
     Route: 058
     Dates: start: 20210629
  35. VENETOCLAX. [Suspect]
     Active Substance: VENETOCLAX
     Indication: ACUTE MYELOID LEUKAEMIA
     Dosage: 100 MILLIGRAM
     Route: 048
     Dates: start: 20210629, end: 20210629
  36. CYCLOBENZAPRINE. [Concomitant]
     Active Substance: CYCLOBENZAPRINE
     Indication: ARTHRALGIA
     Route: 048
     Dates: start: 20210503
  37. LEVOTHYROXINE. [Concomitant]
     Active Substance: LEVOTHYROXINE
     Indication: HYPOTHYROIDISM
     Dosage: 88 MICROGRAM
     Route: 048
     Dates: start: 2011
  38. OMEPRAZOLE. [Concomitant]
     Active Substance: OMEPRAZOLE
     Indication: GASTROOESOPHAGEAL REFLUX DISEASE
     Dosage: 40 MILLIGRAM
     Route: 048
     Dates: start: 2011
  39. MACROGOL [Concomitant]
     Active Substance: POLYETHYLENE GLYCOLS
     Indication: CONSTIPATION
     Dosage: 17 GRAM
     Route: 048
     Dates: start: 20210625
  40. ALPRAZOLAM. [Concomitant]
     Active Substance: ALPRAZOLAM
     Indication: ANXIETY
     Route: 048
     Dates: start: 20210712
  41. POTASSIUM CHLORIDE. [Concomitant]
     Active Substance: POTASSIUM CHLORIDE
     Indication: HYPOKALAEMIA
     Route: 048
     Dates: start: 20210707
  42. SUCRALFATE. [Concomitant]
     Active Substance: SUCRALFATE
     Indication: GASTROOESOPHAGEAL REFLUX DISEASE
     Dosage: 2 GRAM
     Route: 048
     Dates: start: 2011
  43. MORPHINE [Concomitant]
     Active Substance: MORPHINE
     Indication: LUNG INFILTRATION
     Route: 041
     Dates: start: 20210703, end: 20210703
  44. VENETOCLAX. [Suspect]
     Active Substance: VENETOCLAX
     Dosage: 400 MILLIGRAM
     Route: 048
     Dates: start: 20210701, end: 20210701
  45. CALCIUM CARBONATE. [Concomitant]
     Active Substance: CALCIUM CARBONATE
     Indication: SUPPLEMENTATION THERAPY
     Route: 048
  46. MULTIVITAMIN [Concomitant]
     Active Substance: VITAMINS
     Indication: SUPPLEMENTATION THERAPY
     Dosage: 1 TABLET
     Route: 048
     Dates: start: 2001
  47. NORCO [Concomitant]
     Active Substance: ACETAMINOPHEN\HYDROCODONE BITARTRATE
     Indication: RHEUMATOID ARTHRITIS
     Route: 048
     Dates: start: 20210625
  48. ACETAMINOPHEN. [Concomitant]
     Active Substance: ACETAMINOPHEN
     Indication: PREMEDICATION
     Route: 048
     Dates: start: 20210627
  49. ALBUTEROL. [Concomitant]
     Active Substance: ALBUTEROL
     Indication: LUNG INFILTRATION
     Route: 055
     Dates: start: 20210708
  50. MIRTAZAPINE. [Concomitant]
     Active Substance: MIRTAZAPINE
     Dosage: 15 MILLIGRAM
     Route: 048
     Dates: start: 20210716

REACTIONS (1)
  - Lung infiltration [Fatal]

NARRATIVE: CASE EVENT DATE: 20210729
